FAERS Safety Report 7666972-7 (Version None)
Quarter: 2011Q3

REPORT INFORMATION
  Report Type: 
  Country: None (occurrence: None)
  Receive Date: 20110806
  Receipt Date: 20110720
  Transmission Date: 20111222
  Serious: No
  Sender: FDA-Public Use
  Company Number: US-ABBOTT-11P-163-0840575-00

PATIENT
  Sex: Male
  Weight: 95.34 kg

DRUGS (6)
  1. NIASPAN [Suspect]
     Indication: BLOOD TRIGLYCERIDES INCREASED
  2. ASPIRIN [Concomitant]
     Indication: PRODUCT USED FOR UNKNOWN INDICATION
  3. NIASPAN [Suspect]
     Indication: BLOOD CHOLESTEROL INCREASED
     Dosage: AT BEDTIME
     Dates: start: 20110719
  4. NIASPAN [Suspect]
     Indication: LOW DENSITY LIPOPROTEIN DECREASED
  5. UNKNOWN PAIN MEDICATION [Concomitant]
     Indication: PRODUCT USED FOR UNKNOWN INDICATION
  6. UNKNOWN ALLERGY MEDICATION [Concomitant]
     Indication: PRODUCT USED FOR UNKNOWN INDICATION

REACTIONS (3)
  - ABDOMINAL PAIN UPPER [None]
  - FLUSHING [None]
  - FEELING HOT [None]
